FAERS Safety Report 4753558-7 (Version None)
Quarter: 2005Q3

REPORT INFORMATION
  Report Type: 
  Country: None (occurrence: None)
  Receive Date: 20050824
  Receipt Date: 20050812
  Transmission Date: 20060218
  Serious: Yes (Hospitalization)
  Sender: FDA-Public Use
  Company Number: 2005107226

PATIENT
  Age: 60 Year
  Sex: Female
  Weight: 59 kg

DRUGS (5)
  1. CABERGOLINE [Suspect]
     Indication: RESTLESS LEGS SYNDROME
     Dosage: 2.5 MG (2.5 MG ONCE DAILY) ORAL
     Route: 048
     Dates: start: 20030429, end: 20041220
  2. BUDESONIDE [Concomitant]
  3. CALCIMAGON-D3 (CALCIUM CARBONATE, COLECALCIFEROL) [Concomitant]
  4. ISOSORBIDE DINITRATE [Concomitant]
  5. NEXIUM [Concomitant]

REACTIONS (2)
  - BONE PAIN [None]
  - CHEST PAIN [None]
